FAERS Safety Report 11610126 (Version 2)
Quarter: 2015Q4

REPORT INFORMATION
  Report Type: Spontaneous
  Country: MX (occurrence: MX)
  Receive Date: 20151008
  Receipt Date: 20151015
  Transmission Date: 20160304
  Serious: Yes (Death, Life-Threatening, Hospitalization)
  Sender: FDA-Public Use
  Company Number: MX-ROCHE-1643061

PATIENT
  Age: 58 Year
  Sex: Male
  Weight: 53 kg

DRUGS (8)
  1. CISPLATIN. [Suspect]
     Active Substance: CISPLATIN
     Indication: GASTROOESOPHAGEAL CANCER
     Dosage: LAST DATE PRIOR TO SAE: 14/SEP/2015
     Route: 042
  2. DEXAMETHASONE. [Concomitant]
     Active Substance: DEXAMETHASONE
     Route: 065
     Dates: start: 20150914, end: 20150914
  3. CLOROTRIMETON [Concomitant]
     Route: 065
     Dates: start: 20150914, end: 20150914
  4. CAPECITABINE. [Suspect]
     Active Substance: CAPECITABINE
     Indication: GASTROOESOPHAGEAL CANCER
     Dosage: LAST DATE PRIOR TO SAE: 19/SEP/2015
     Route: 048
     Dates: end: 20150919
  5. ONDANSETRON [Concomitant]
     Active Substance: ONDANSETRON
     Route: 065
     Dates: start: 20150914, end: 20150914
  6. APREPITANT. [Concomitant]
     Active Substance: APREPITANT
     Route: 065
     Dates: start: 20150914, end: 20150914
  7. RANITIDINE [Concomitant]
     Active Substance: RANITIDINE\RANITIDINE HYDROCHLORIDE
     Route: 065
     Dates: start: 20150914, end: 20150914
  8. MANITOL [Concomitant]
     Route: 065
     Dates: start: 20150914, end: 20150914

REACTIONS (2)
  - Death [Fatal]
  - Abdominal pain [Not Recovered/Not Resolved]

NARRATIVE: CASE EVENT DATE: 20150919
